FAERS Safety Report 12967054 (Version 6)
Quarter: 2018Q2

REPORT INFORMATION
  Report Type: Report from Study
  Country: DE (occurrence: DE)
  Receive Date: 20161123
  Receipt Date: 20180604
  Transmission Date: 20180711
  Serious: Yes (Hospitalization)
  Sender: FDA-Public Use
  Company Number: DE-ROCHE-1857996

PATIENT
  Age: 63 Year
  Sex: Male

DRUGS (10)
  1. ASPIRIN. [Concomitant]
     Active Substance: ASPIRIN
  2. AMINEURIN [Concomitant]
     Active Substance: AMITRIPTYLINE HYDROCHLORIDE
  3. CALCILAC (GERMANY) [Concomitant]
     Active Substance: CALCIUM CARBONATE\CHOLECALCIFEROL
  4. HYDROMORPHONE [Concomitant]
     Active Substance: HYDROMORPHONE
  5. FOLSAN [Concomitant]
     Active Substance: FOLIC ACID
  6. ARCOXIA [Concomitant]
     Active Substance: ETORICOXIB
  7. PANTOPRAZOL [Concomitant]
     Active Substance: PANTOPRAZOLE SODIUM
  8. RITUXIMAB. [Suspect]
     Active Substance: RITUXIMAB
     Indication: RHEUMATOID ARTHRITIS
     Route: 042
  9. METHOTREXATE. [Suspect]
     Active Substance: METHOTREXATE
     Indication: RHEUMATOID ARTHRITIS
     Route: 065
     Dates: end: 201606
  10. LISINOPRIL. [Concomitant]
     Active Substance: LISINOPRIL

REACTIONS (5)
  - Prostate cancer metastatic [Unknown]
  - Pulmonary mass [Unknown]
  - Pancreatic carcinoma [Unknown]
  - Helicobacter gastritis [Unknown]
  - Anaemia of malignant disease [Unknown]

NARRATIVE: CASE EVENT DATE: 20160621
